FAERS Safety Report 5348501-6 (Version None)
Quarter: 2007Q2

REPORT INFORMATION
  Report Type: 
  Country: None (occurrence: None)
  Receive Date: 20070605
  Receipt Date: 20070525
  Transmission Date: 20071010
  Serious: Yes (Life-Threatening)
  Sender: FDA-Public Use
  Company Number: MEDI-0005813

PATIENT
  Age: 1 Month
  Sex: Male
  Weight: 2.6 kg

DRUGS (1)
  1. SYNAGIS [Suspect]
     Dosage: 37.5 MG, INTRAMUSCULAR
     Route: 030
     Dates: start: 20070118, end: 20070118

REACTIONS (3)
  - APATHY [None]
  - APNOEA [None]
  - CYANOSIS [None]
